FAERS Safety Report 7511059-7 (Version None)
Quarter: 2011Q2

REPORT INFORMATION
  Report Type: 
  Country: None (occurrence: None)
  Receive Date: 20110531
  Receipt Date: 20110517
  Transmission Date: 20111010
  Serious: Yes (Death)
  Sender: FDA-Public Use
  Company Number: US-CELGENEUS-163-21880-11042411

PATIENT
  Sex: Male

DRUGS (4)
  1. SOTALOL HCL [Concomitant]
     Dosage: 40 MILLIGRAM
     Route: 048
  2. REVLIMID [Suspect]
     Indication: MULTIPLE MYELOMA
     Dosage: 20 MILLIGRAM
     Route: 048
     Dates: start: 20110401
  3. LASIX [Concomitant]
     Dosage: 20 MILLIGRAM
     Route: 048
  4. POTASSIUM CHLORIDE [Concomitant]
     Dosage: 20 MILLIEQUIVALENTS
     Route: 048

REACTIONS (1)
  - CEREBROVASCULAR ACCIDENT [None]
